FAERS Safety Report 11184572 (Version 1)
Quarter: 2015Q2

REPORT INFORMATION
  Report Type: Spontaneous
  Country: US (occurrence: US)
  Receive Date: 20150612
  Receipt Date: 20150612
  Transmission Date: 20150821
  Serious: Yes (Hospitalization)
  Sender: FDA-Public Use
  Company Number: US-ACTAVIS-2015-11487

PATIENT
  Age: 43 Year
  Sex: Female

DRUGS (2)
  1. HALAVEN [Concomitant]
     Active Substance: ERIBULIN MESYLATE
     Indication: CHEMOTHERAPY
     Dosage: UNKNOWN
     Route: 065
     Dates: start: 20120713
  2. TAMOXIFEN CITRATE (ACTAVIS LABORATORIES FL) [Suspect]
     Active Substance: TAMOXIFEN CITRATE
     Indication: CHEMOTHERAPY
     Dosage: 20 MG, DAILY
     Route: 048
     Dates: start: 201209, end: 20141113

REACTIONS (8)
  - Ear disorder [Unknown]
  - Pleural effusion [Unknown]
  - Swelling [Unknown]
  - Diarrhoea [Unknown]
  - Mass [Unknown]
  - Weight decreased [Unknown]
  - Fatigue [Unknown]
  - Chest pain [Unknown]

NARRATIVE: CASE EVENT DATE: 201212
